FAERS Safety Report 6085026-7 (Version None)
Quarter: 2009Q1

REPORT INFORMATION
  Report Type: 
  Country: None (occurrence: None)
  Receive Date: 20090220
  Receipt Date: 20090213
  Transmission Date: 20090719
  Serious: Yes (Hospitalization, Other)
  Sender: FDA-Public Use
  Company Number: FR-BAYER-200817313GPV

PATIENT
  Age: 45 Year
  Sex: Female
  Weight: 65 kg

DRUGS (1)
  1. MIRENA [Suspect]
     Indication: CONTRACEPTION
     Dosage: TOTAL DAILY DOSE: 20 ?G
     Route: 015
     Dates: start: 20021209, end: 20071031

REACTIONS (6)
  - C-REACTIVE PROTEIN INCREASED [None]
  - CIRCULATING ANTICOAGULANT POSITIVE [None]
  - HILAR LYMPHADENOPATHY [None]
  - PELVIC PAIN [None]
  - PELVIC VENOUS THROMBOSIS [None]
  - PYREXIA [None]
